FAERS Safety Report 6601916-8 (Version None)
Quarter: 2010Q1

REPORT INFORMATION
  Report Type: 
  Country: None (occurrence: None)
  Receive Date: 20100225
  Receipt Date: 20100215
  Transmission Date: 20100710
  Serious: Yes (Hospitalization, Other)
  Sender: FDA-Public Use
  Company Number: US-PFIZER INC-2009266089

PATIENT
  Sex: Female

DRUGS (1)
  1. SUTENT [Suspect]
     Indication: RENAL CELL CARCINOMA
     Dosage: 50 MG, 1X/DAY FOR 28 DAYS EVERY 42 DAYS
     Dates: start: 20090831, end: 20090919

REACTIONS (6)
  - CEREBROVASCULAR ACCIDENT [None]
  - HYPOKALAEMIA [None]
  - LEUKOPENIA [None]
  - SYNCOPE [None]
  - THROMBOCYTOPENIA [None]
  - URINARY TRACT INFECTION [None]
